FAERS Safety Report 6405495-X (Version None)
Quarter: 2009Q4

REPORT INFORMATION
  Report Type: 
  Country: None (occurrence: None)
  Receive Date: 20091019
  Receipt Date: 20091012
  Transmission Date: 20100525
  Serious: Yes (Hospitalization, Other)
  Sender: FDA-Public Use
  Company Number: PL-ROXANE LABORATORIES, INC.-2009-RO-01045RO

PATIENT
  Age: 32 Year
  Sex: Male

DRUGS (9)
  1. RISPERIDONE [Suspect]
     Indication: SCHIZOPHRENIA, PARANOID TYPE
     Dosage: 6 MG
     Dates: start: 20040601
  2. RISPERIDONE [Suspect]
     Dosage: 8 MG
  3. RISPERIDONE [Suspect]
     Dosage: 9 MG
  4. ELECTROLYTE SOLUTIONS [Concomitant]
     Indication: ELECTROLYTE IMBALANCE
     Route: 042
  5. DIAZEPAM [Concomitant]
     Route: 048
  6. DIAZEPAM [Concomitant]
     Route: 048
  7. BROMOCRYPTINE [Concomitant]
     Indication: NEUROLEPTIC MALIGNANT SYNDROME
     Route: 048
  8. CLOZAPINE [Concomitant]
     Indication: SCHIZOPHRENIA, PARANOID TYPE
  9. CLOZAPINE [Concomitant]
     Dosage: 200 MG

REACTIONS (3)
  - ELECTROLYTE IMBALANCE [None]
  - NEUROLEPTIC MALIGNANT SYNDROME [None]
  - SCHIZOPHRENIA [None]
